FAERS Safety Report 15001765 (Version 1)
Quarter: 2018Q2

REPORT INFORMATION
  Report Type: Spontaneous
  Country: AT (occurrence: AT)
  Receive Date: 20180612
  Receipt Date: 20180612
  Transmission Date: 20180711
  Serious: Yes (Hospitalization)
  Sender: FDA-Public Use
  Company Number: AT-JNJFOC-20180600549

PATIENT
  Age: 71 Year
  Sex: Female

DRUGS (3)
  1. STELARA [Suspect]
     Active Substance: USTEKINUMAB
     Indication: PSORIATIC ARTHROPATHY
     Route: 058
     Dates: start: 201707
  2. EBETREXAT [Suspect]
     Active Substance: METHOTREXATE SODIUM
     Indication: PSORIATIC ARTHROPATHY
     Route: 058
  3. APREDNISLON [Suspect]
     Active Substance: PREDNISOLONE
     Indication: PSORIATIC ARTHROPATHY
     Route: 065

REACTIONS (2)
  - Diaphragmatic hernia [Recovered/Resolved]
  - Abdominal hernia [Recovered/Resolved]

NARRATIVE: CASE EVENT DATE: 201709
